FAERS Safety Report 8567714-3 (Version None)
Quarter: 2012Q3

REPORT INFORMATION
  Report Type: 
  Country: None (occurrence: None)
  Receive Date: 20120803
  Receipt Date: 20120725
  Transmission Date: 20120928
  Serious: Yes (Other)
  Sender: FDA-Public Use
  Company Number: FR-ASTRAZENECA-2012SE25965

PATIENT
  Age: 449 Month
  Sex: Female

DRUGS (4)
  1. SEROQUEL [Suspect]
     Route: 048
  2. AUGMENTIN '500' [Concomitant]
     Indication: TONSILLITIS
     Route: 048
  3. SEROQUEL [Suspect]
     Route: 048
     Dates: start: 20120323
  4. SEROQUEL [Suspect]
     Indication: BIPOLAR DISORDER
     Route: 048
     Dates: start: 20120301, end: 20120322

REACTIONS (5)
  - RASH [None]
  - PHOTOSENSITIVITY REACTION [None]
  - MUSCLE SPASMS [None]
  - FALL [None]
  - MEMORY IMPAIRMENT [None]
